FAERS Safety Report 11318141 (Version 2)
Quarter: 2015Q3

REPORT INFORMATION
  Report Type: Spontaneous
  Country: US (occurrence: US)
  Receive Date: 20150728
  Receipt Date: 20150730
  Transmission Date: 20151125
  Serious: Yes (Other)
  Sender: FDA-Public Use
  Company Number: US-BAXTER-2015BAX039786

PATIENT
  Age: 35 Year
  Sex: Female

DRUGS (2)
  1. POTASSIUM [Suspect]
     Active Substance: POTASSIUM
     Indication: NEPHROCALCINOSIS
     Route: 048
  2. _GLUOCGLUCOSE, MONOHYDRATE; POTASSIUM CHLORIDE_GLUCOSE, MONOHYDRATE 5.00 %; [Suspect]
     Active Substance: DEXTROSE\POTASSIUM CHLORIDE
     Indication: NEPHROCALCINOSIS
     Route: 042

REACTIONS (2)
  - Hypokalaemia [Recovered/Resolved]
  - Renal tubular acidosis [Unknown]
